FAERS Safety Report 6649264-4 (Version None)
Quarter: 2010Q1

REPORT INFORMATION
  Report Type: 
  Country: None (occurrence: None)
  Receive Date: 20100324
  Receipt Date: 20100322
  Transmission Date: 20100710
  Serious: Yes (Other)
  Sender: FDA-Public Use
  Company Number: DE-WYE-G05736510

PATIENT

DRUGS (1)
  1. VENLAFAXINE HCL [Suspect]
     Dosage: UNKNOWN
     Route: 048

REACTIONS (3)
  - BLOOD CREATINE PHOSPHOKINASE INCREASED [None]
  - DRUG INTERACTION [None]
  - RHABDOMYOLYSIS [None]
